FAERS Safety Report 4480542-3 (Version None)
Quarter: 2004Q4

REPORT INFORMATION
  Report Type: 
  Country: None (occurrence: None)
  Receive Date: 20041019
  Receipt Date: 20041008
  Transmission Date: 20050328
  Serious: Yes (Death)
  Sender: FDA-Public Use
  Company Number: 2004AC00452

PATIENT
  Age: 39 Year
  Sex: Female

DRUGS (6)
  1. SEROQUEL [Suspect]
  2. ACETAMINOPHEN [Concomitant]
  3. BUPROPION HCL [Concomitant]
  4. TOPIRMATE [Concomitant]
  5. OXYCODONE [Concomitant]
  6. PAROXETINE [Concomitant]

REACTIONS (2)
  - COMPLETED SUICIDE [None]
  - OVERDOSE [None]
